FAERS Safety Report 9136898 (Version 2)
Quarter: 2013Q2

REPORT INFORMATION
  Report Type: Spontaneous
  Country: FR (occurrence: FR)
  Receive Date: 20130304
  Receipt Date: 20130403
  Transmission Date: 20140414
  Serious: Yes (Other)
  Sender: FDA-Public Use
  Company Number: FR-PFIZER INC-2013071503

PATIENT
  Age: 78 Year
  Sex: Female

DRUGS (2)
  1. ALDACTONE [Suspect]
     Dosage: 25 MG, 1X/DAY
     Route: 048
     Dates: start: 201210, end: 20130125
  2. LERCANIDIPINE HYDROCHLORIDE [Suspect]
     Dosage: 20 MG, 1X/DAY
     Route: 048
     Dates: start: 20121008, end: 20130125

REACTIONS (1)
  - Pemphigoid [Not Recovered/Not Resolved]
